FAERS Safety Report 19009974 (Version 19)
Quarter: 2022Q3

REPORT INFORMATION
  Report Type: Spontaneous
  Country: CA (occurrence: CA)
  Receive Date: 20210316
  Receipt Date: 20220729
  Transmission Date: 20221027
  Serious: Yes (Hospitalization, Other)
  Sender: FDA-Public Use
  Company Number: CA-CELLTRION INC.-2021CA001159

PATIENT

DRUGS (22)
  1. INFLECTRA [Suspect]
     Active Substance: INFLIXIMAB-DYYB
     Indication: Colitis ulcerative
     Dosage: 500 MG, EVERY 8 WEEKS
     Route: 042
     Dates: start: 20210120
  2. INFLECTRA [Suspect]
     Active Substance: INFLIXIMAB-DYYB
     Dosage: 600 MG EVERY 6 WEEKS
     Route: 042
     Dates: start: 20210120, end: 20220718
  3. INFLECTRA [Suspect]
     Active Substance: INFLIXIMAB-DYYB
     Dosage: 6 MG/KG EVERY 6 WEEKS
     Route: 042
     Dates: start: 20210120
  4. INFLECTRA [Suspect]
     Active Substance: INFLIXIMAB-DYYB
     Dosage: 500 MG, EVERY 8 WEEKS
     Route: 042
     Dates: start: 20210203
  5. INFLECTRA [Suspect]
     Active Substance: INFLIXIMAB-DYYB
     Dosage: 500 MG, EVERY 8 WEEKS
     Route: 042
     Dates: start: 20210305
  6. INFLECTRA [Suspect]
     Active Substance: INFLIXIMAB-DYYB
     Dosage: 500 MG, EVERY 8 WEEKS
     Route: 042
     Dates: start: 20210424
  7. INFLECTRA [Suspect]
     Active Substance: INFLIXIMAB-DYYB
     Dosage: 500 MG, EVERY 8 WEEKS
     Route: 042
     Dates: start: 20210424
  8. INFLECTRA [Suspect]
     Active Substance: INFLIXIMAB-DYYB
     Dosage: 500 MG, EVERY 8 WEEKS
     Route: 042
     Dates: start: 20210719
  9. INFLECTRA [Suspect]
     Active Substance: INFLIXIMAB-DYYB
     Dosage: 10 MG/KG, EVERY 8 WEEKS
     Route: 042
     Dates: start: 20210910
  10. INFLECTRA [Suspect]
     Active Substance: INFLIXIMAB-DYYB
     Dosage: 10 MG/KG, EVERY 8 WEEKS
     Route: 042
     Dates: start: 20210910
  11. INFLECTRA [Suspect]
     Active Substance: INFLIXIMAB-DYYB
     Dosage: 6 MG/KG EVERY 6 WEEKS
     Route: 042
     Dates: start: 20211110
  12. INFLECTRA [Suspect]
     Active Substance: INFLIXIMAB-DYYB
     Dosage: 600 MG, EVERY 6 WEEKS
     Route: 042
     Dates: start: 20211221
  13. INFLECTRA [Suspect]
     Active Substance: INFLIXIMAB-DYYB
     Dosage: 600 MG, EVERY 6 WEEKS
     Route: 042
     Dates: start: 20211221
  14. INFLECTRA [Suspect]
     Active Substance: INFLIXIMAB-DYYB
     Dosage: 600 MG, EVERY 6 WEEKS, STOPPED
     Route: 042
     Dates: start: 20220111
  15. INFLECTRA [Suspect]
     Active Substance: INFLIXIMAB-DYYB
     Dosage: 600 MG, EVERY 6 WEEKS
     Route: 042
     Dates: start: 20220128
  16. INFLECTRA [Suspect]
     Active Substance: INFLIXIMAB-DYYB
     Dosage: 600 MG, EVERY 6 WEEKS
     Route: 042
     Dates: start: 20220128
  17. INFLECTRA [Suspect]
     Active Substance: INFLIXIMAB-DYYB
     Dosage: 600 MG, EVERY 6 WEEKS
     Route: 042
     Dates: start: 20220428
  18. INFLECTRA [Suspect]
     Active Substance: INFLIXIMAB-DYYB
     Dosage: 600 MG, EVERY 6 WEEKS
     Route: 042
     Dates: start: 20220611
  19. BENADRYL [Concomitant]
     Active Substance: DIPHENHYDRAMINE HYDROCHLORIDE
     Indication: Premedication
     Dosage: 25-50 MG
     Route: 048
     Dates: start: 20210120
  20. IMURAN [Concomitant]
     Active Substance: AZATHIOPRINE
     Dosage: 100 MG
  21. TYLENOL [Concomitant]
     Active Substance: ACETAMINOPHEN
     Indication: Premedication
     Dosage: 650 MG
     Route: 048
     Dates: start: 20210120
  22. TYLENOL [Concomitant]
     Active Substance: ACETAMINOPHEN
     Dosage: 650 MG
     Route: 048

REACTIONS (24)
  - Obstructive pancreatitis [Unknown]
  - Biliary colic [Unknown]
  - Tooth abscess [Recovered/Resolved]
  - Cholecystitis chronic [Unknown]
  - Condition aggravated [Not Recovered/Not Resolved]
  - Therapeutic response shortened [Unknown]
  - Drug level below therapeutic [Unknown]
  - Tooth infection [Recovered/Resolved]
  - COVID-19 [Unknown]
  - Ageusia [Unknown]
  - Dizziness [Recovered/Resolved]
  - Eczema [Unknown]
  - Oral pain [Unknown]
  - Mouth swelling [Unknown]
  - Malaise [Unknown]
  - Illness [Unknown]
  - Cholelithiasis [Recovered/Resolved]
  - Lip swelling [Unknown]
  - Hypoaesthesia [Unknown]
  - Pharyngeal paraesthesia [Unknown]
  - Diarrhoea [Unknown]
  - Lymphadenopathy [Not Recovered/Not Resolved]
  - Off label use [Unknown]
  - Off label use [Unknown]

NARRATIVE: CASE EVENT DATE: 20210101
